FAERS Safety Report 25908508 (Version 1)
Quarter: 2025Q4

REPORT INFORMATION
  Report Type: Spontaneous
  Country: CO (occurrence: CO)
  Receive Date: 20251010
  Receipt Date: 20251010
  Transmission Date: 20260118
  Serious: Yes (Other)
  Sender: PFIZER
  Company Number: CO-PFIZER INC-PV202500119800

PATIENT
  Age: 58 Year
  Sex: Male

DRUGS (1)
  1. GENOTROPIN [Suspect]
     Active Substance: SOMATROPIN
     Indication: Impaired healing

REACTIONS (4)
  - Erectile dysfunction [Unknown]
  - Chronic kidney disease [Unknown]
  - Hypertension [Unknown]
  - Off label use [Unknown]
